FAERS Safety Report 6867304-4 (Version None)
Quarter: 2010Q2

REPORT INFORMATION
  Report Type: 
  Country: None (occurrence: None)
  Receive Date: 20100528
  Receipt Date: 20100127
  Transmission Date: 20101027
  Serious: No
  Sender: FDA-Public Use
  Company Number: 2010012832

PATIENT
  Age: 47 Year
  Sex: Female
  Weight: 50.8 kg

DRUGS (1)
  1. TOVIAZ [Suspect]
     Indication: HYPERTONIC BLADDER
     Dosage: 4 MG, 1X/DAY, ORAL
     Route: 048
     Dates: start: 20100121

REACTIONS (2)
  - BREAST PAIN [None]
  - BREAST SWELLING [None]
